FAERS Safety Report 15561058 (Version 8)
Quarter: 2019Q1

REPORT INFORMATION
  Report Type: Spontaneous
  Country: US (occurrence: US)
  Receive Date: 20181029
  Receipt Date: 20190212
  Transmission Date: 20190417
  Serious: No
  Sender: FDA-Public Use
  Company Number: US-PFIZER INC-2018440058

PATIENT
  Age: 61 Year
  Sex: Female
  Weight: 82 kg

DRUGS (6)
  1. IBRANCE [Suspect]
     Active Substance: PALBOCICLIB
     Indication: BREAST CANCER
     Dosage: 125 MG, CYCLIC (125MG DAILY FOR 21 DAYS ON, 7 DAYS OFF)
     Route: 048
     Dates: start: 20181001, end: 201901
  2. IBRANCE [Suspect]
     Active Substance: PALBOCICLIB
     Indication: BREAST CANCER STAGE IV
  3. LETROZOLE. [Suspect]
     Active Substance: LETROZOLE
     Indication: BREAST CANCER METASTATIC
     Dosage: UNK, 1X/DAY
     Route: 048
     Dates: start: 201810
  4. LETROZOLE. [Suspect]
     Active Substance: LETROZOLE
     Indication: HORMONE THERAPY
  5. HYDROCORTISONE. [Concomitant]
     Active Substance: HYDROCORTISONE
     Dosage: UNK, 2X/DAY
  6. HYDROCORTISONE. [Concomitant]
     Active Substance: HYDROCORTISONE
     Indication: PAIN
     Dosage: UNK, 1X/DAY

REACTIONS (18)
  - Malaise [Not Recovered/Not Resolved]
  - Hepatic enzyme increased [Unknown]
  - Fall [Unknown]
  - Decreased appetite [Not Recovered/Not Resolved]
  - Memory impairment [Unknown]
  - Stress [Unknown]
  - Depressed mood [Unknown]
  - Tumour marker increased [Not Recovered/Not Resolved]
  - Pain [Unknown]
  - Disorientation [Unknown]
  - Loss of personal independence in daily activities [Not Recovered/Not Resolved]
  - Dizziness [Unknown]
  - Neoplasm progression [Unknown]
  - Fatigue [Not Recovered/Not Resolved]
  - Somnolence [Unknown]
  - Condition aggravated [Not Recovered/Not Resolved]
  - Nausea [Not Recovered/Not Resolved]
  - Asthenia [Not Recovered/Not Resolved]

NARRATIVE: CASE EVENT DATE: 201810
